FAERS Safety Report 7405884-0 (Version None)
Quarter: 2011Q2

REPORT INFORMATION
  Report Type: 
  Country: None (occurrence: None)
  Receive Date: 20110411
  Receipt Date: 20110405
  Transmission Date: 20111010
  Serious: Yes (Hospitalization)
  Sender: FDA-Public Use
  Company Number: NL-TEVA-249026ISR

PATIENT
  Sex: Female
  Weight: 57 kg

DRUGS (8)
  1. METFORMIN HCL [Suspect]
     Indication: TYPE 2 DIABETES MELLITUS
     Dosage: 1000 MILLIGRAM;
     Dates: start: 20090101, end: 20100820
  2. ADALIMUMAB [Suspect]
     Indication: RHEUMATOID ARTHRITIS
     Dates: start: 20100317, end: 20100809
  3. ROSUVASTATIN [Suspect]
     Indication: HYPERCHOLESTEROLAEMIA
     Dosage: 10 MILLIGRAM;
     Dates: start: 20040101, end: 20100827
  4. CLARITHROMYCIN [Concomitant]
     Dosage: 1000 MILLIGRAM;
     Dates: start: 20100827
  5. ESOMEPRAZOLE MAGNESIUM [Concomitant]
     Dosage: 80 MILLIGRAM;
     Dates: start: 20100810
  6. RISEDRONATE SODIUM [Concomitant]
     Dates: start: 20100809
  7. IRBESARTAN [Concomitant]
     Dosage: 300 MILLIGRAM;
     Dates: start: 20060101
  8. CALCIUM CARBONATE [Concomitant]
     Dosage: 1 DOSAGE FORMS;
     Dates: start: 20100810

REACTIONS (1)
  - ALVEOLITIS ALLERGIC [None]
